FAERS Safety Report 25282892 (Version 2)
Quarter: 2025Q2

REPORT INFORMATION
  Report Type: Spontaneous
  Country: CH (occurrence: CH)
  Receive Date: 20250508
  Receipt Date: 20250512
  Transmission Date: 20250717
  Serious: Yes (Life-Threatening, Other)
  Sender: PFIZER
  Company Number: CH-MLMSERVICE-20250428-PI492601-00128-1

PATIENT
  Age: 73 Year
  Sex: Female

DRUGS (2)
  1. DOXORUBICIN HYDROCHLORIDE [Suspect]
     Active Substance: DOXORUBICIN HYDROCHLORIDE
     Indication: Sarcoma
     Dosage: FIRST DOSE
     Dates: start: 201708, end: 201708
  2. OLARATUMAB [Suspect]
     Active Substance: OLARATUMAB
     Indication: Sarcoma
     Dates: start: 201708, end: 201708

REACTIONS (1)
  - Anaphylactic shock [Unknown]

NARRATIVE: CASE EVENT DATE: 20170801
